FAERS Safety Report 7228825-8 (Version None)
Quarter: 2011Q1

REPORT INFORMATION
  Report Type: 
  Country: None (occurrence: None)
  Receive Date: 20110117
  Receipt Date: 20080322
  Transmission Date: 20110831
  Serious: Yes (Life-Threatening, Other)
  Sender: FDA-Public Use
  Company Number: ZA-RANBAXY-2008R5-13805

PATIENT

DRUGS (4)
  1. PREDNISONE [Concomitant]
     Dosage: 20 MG, QD
  2. MYPAID [Concomitant]
     Dosage: 200 MG, UNK
  3. CEROXIM 500 TABLET [Suspect]
     Indication: OTITIS MEDIA
     Dosage: 500 MG, UNK
     Route: 048
     Dates: start: 20080312, end: 20080312
  4. XYZAL [Concomitant]
     Dosage: 5 MG, QD

REACTIONS (7)
  - DYSPNOEA [None]
  - ANAPHYLACTIC REACTION [None]
  - LIP SWELLING [None]
  - SWOLLEN TONGUE [None]
  - URTICARIA [None]
  - RASH [None]
  - LARYNGEAL OEDEMA [None]
